FAERS Safety Report 18772856 (Version 1)
Quarter: 2021Q1

REPORT INFORMATION
  Report Type: Spontaneous
  Country: US (occurrence: US)
  Receive Date: 20210121
  Receipt Date: 20210121
  Transmission Date: 20210419
  Serious: No
  Sender: FDA-Public Use
  Company Number: None

PATIENT
  Age: 22 Year
  Sex: Female
  Weight: 65.25 kg

DRUGS (2)
  1. PROPRANOLOL [Suspect]
     Active Substance: PROPRANOLOL HYDROCHLORIDE
     Indication: ANXIETY
     Route: 048
     Dates: start: 20160301, end: 20160301
  2. UNKNOWN ? AN ANTIDEPRESSANT AT THE TIME [Concomitant]

REACTIONS (1)
  - Hallucination [None]

NARRATIVE: CASE EVENT DATE: 20160301
